FAERS Safety Report 4924425-0 (Version None)
Quarter: 2006Q1

REPORT INFORMATION
  Report Type: 
  Country: None (occurrence: None)
  Receive Date: 20060227
  Receipt Date: 20060215
  Transmission Date: 20060701
  Serious: Yes (Other)
  Sender: FDA-Public Use
  Company Number: JP-ROCHE-437314

PATIENT
  Age: 70 Year
  Sex: Female

DRUGS (10)
  1. TAMIFLU [Suspect]
     Indication: INFLUENZA
     Route: 048
     Dates: start: 20060210
  2. EUGLUCON [Concomitant]
     Dosage: FROM 13 JAN-25 JAN 2006 DOSING WAS 3 DOSEFORM 2X DAY=6 DOSEFORM. FROM 26 JAN-26 JAN 2006 DOSING WAS+
     Route: 048
     Dates: start: 20060113
  3. BASEN [Concomitant]
     Route: 048
     Dates: start: 20060113
  4. ACTOS [Concomitant]
     Route: 048
     Dates: start: 20060113
  5. PROMETHAZINE HCL [Concomitant]
     Route: 048
     Dates: start: 20060116
  6. RISPERDAL [Concomitant]
     Route: 048
     Dates: start: 20060116
  7. DIOVAN [Concomitant]
     Route: 048
     Dates: start: 20060116
  8. CONAN [Concomitant]
     Route: 048
     Dates: start: 20060116
  9. GLUCOSE [Concomitant]
     Dosage: ROUTE- INJECTABLE (NOS). 24 JAN-24 JAN 2006 DOSING WAS 10G DAILY. FROM 26-26 JAN 2006 DOSING WAS 1 +
     Route: 050
     Dates: start: 20060124, end: 20060212
  10. TASMOLIN [Concomitant]
     Route: 048
     Dates: start: 20060210

REACTIONS (3)
  - BLOOD GLUCOSE DECREASED [None]
  - FALL [None]
  - SPINAL CORD INJURY CERVICAL [None]
